FAERS Safety Report 8520869-9 (Version None)
Quarter: 2012Q3

REPORT INFORMATION
  Report Type: 
  Country: None (occurrence: None)
  Receive Date: 20120719
  Receipt Date: 20120710
  Transmission Date: 20120928
  Serious: Yes (Hospitalization)
  Sender: FDA-Public Use
  Company Number: IT-SANOFI-AVENTIS-2012SA049141

PATIENT
  Sex: Male

DRUGS (2)
  1. RIFAMPICIN [Suspect]
     Route: 065
  2. LEVOFLOXACIN [Concomitant]

REACTIONS (7)
  - OLIGURIA [None]
  - VOMITING [None]
  - ANURIA [None]
  - URTICARIA [None]
  - DEHYDRATION [None]
  - LACTIC ACIDOSIS [None]
  - RENAL FAILURE ACUTE [None]
